FAERS Safety Report 9751717 (Version 42)
Quarter: 2016Q4

REPORT INFORMATION
  Report Type: Report from Study
  Country: CA (occurrence: CA)
  Receive Date: 20131213
  Receipt Date: 20161114
  Transmission Date: 20170207
  Serious: Yes (Other)
  Sender: FDA-Public Use
  Company Number: CA-ROCHE-1237790

PATIENT
  Age: 57 Year
  Sex: Female
  Weight: 76 kg

DRUGS (13)
  1. ACTEMRA [Suspect]
     Active Substance: TOCILIZUMAB
     Dosage: DOSE INCREASED
     Route: 042
     Dates: start: 20131112
  2. ACTEMRA [Suspect]
     Active Substance: TOCILIZUMAB
     Route: 042
     Dates: start: 20151001
  3. ACTEMRA [Suspect]
     Active Substance: TOCILIZUMAB
     Route: 042
     Dates: end: 20160922
  4. ZOPICLONE [Concomitant]
     Active Substance: ZOPICLONE
  5. ACTEMRA [Suspect]
     Active Substance: TOCILIZUMAB
     Route: 042
     Dates: start: 20130515
  6. NAPROXEN. [Concomitant]
     Active Substance: NAPROXEN
  7. ACTEMRA [Suspect]
     Active Substance: TOCILIZUMAB
     Route: 042
     Dates: start: 20140109, end: 20140918
  8. MORPHINE [Concomitant]
     Active Substance: MORPHINE
     Indication: PAIN
  9. RAMIPRIL. [Concomitant]
     Active Substance: RAMIPRIL
  10. SALAGEN [Concomitant]
     Active Substance: PILOCARPINE HYDROCHLORIDE
  11. ACTEMRA [Suspect]
     Active Substance: TOCILIZUMAB
     Indication: RHEUMATOID ARTHRITIS
     Route: 042
     Dates: start: 20130613, end: 20160922
  12. FOLIC ACID. [Concomitant]
     Active Substance: FOLIC ACID
  13. OMEPRAZOLE. [Concomitant]
     Active Substance: OMEPRAZOLE

REACTIONS (57)
  - Hypoaesthesia [Not Recovered/Not Resolved]
  - Foot deformity [Unknown]
  - Malaise [Unknown]
  - Arthropod bite [Recovered/Resolved]
  - Chest pain [Unknown]
  - Rash [Unknown]
  - Gastritis erosive [Not Recovered/Not Resolved]
  - Fall [Unknown]
  - Abdominal pain [Not Recovered/Not Resolved]
  - Micturition urgency [Not Recovered/Not Resolved]
  - Arthropod sting [Recovered/Resolved]
  - Pruritus generalised [Unknown]
  - Musculoskeletal pain [Unknown]
  - Hypertension [Unknown]
  - Ear pain [Unknown]
  - Body temperature decreased [Unknown]
  - Weight increased [Unknown]
  - Fatigue [Unknown]
  - Musculoskeletal pain [Unknown]
  - Asthma [Not Recovered/Not Resolved]
  - Nasopharyngitis [Recovered/Resolved]
  - Influenza [Recovered/Resolved]
  - Nausea [Unknown]
  - Oxygen saturation decreased [Unknown]
  - Blood pressure increased [Unknown]
  - Blood pressure diastolic abnormal [Unknown]
  - Pain [Unknown]
  - Back pain [Not Recovered/Not Resolved]
  - Vision blurred [Unknown]
  - Abdominal pain upper [Recovered/Resolved]
  - Localised infection [Recovered/Resolved]
  - Urinary tract infection [Unknown]
  - Diarrhoea [Recovered/Resolved]
  - Blood pressure fluctuation [Unknown]
  - Ear pain [Unknown]
  - Contusion [Unknown]
  - Arthralgia [Not Recovered/Not Resolved]
  - Blood pressure increased [Unknown]
  - Hot flush [Recovered/Resolved]
  - Headache [Unknown]
  - Abdominal pain upper [Not Recovered/Not Resolved]
  - Blood pressure systolic increased [Unknown]
  - Pyrexia [Recovered/Resolved]
  - Contusion [Unknown]
  - Weight increased [Not Recovered/Not Resolved]
  - Lower respiratory tract infection [Unknown]
  - Weight decreased [Unknown]
  - Poor venous access [Unknown]
  - Viral infection [Not Recovered/Not Resolved]
  - Immunodeficiency [Unknown]
  - Immunosuppression [Unknown]
  - Arthralgia [Not Recovered/Not Resolved]
  - Cough [Unknown]
  - Infusion related reaction [Unknown]
  - Chest X-ray abnormal [Unknown]
  - Vomiting [Unknown]
  - Pain [Unknown]

NARRATIVE: CASE EVENT DATE: 20130613
